FAERS Safety Report 9594843 (Version 1)
Quarter: 2013Q3

REPORT INFORMATION
  Report Type: Spontaneous
  Country: US (occurrence: None)
  Receive Date: 20130927
  Receipt Date: 20130927
  Transmission Date: 20140515
  Serious: Yes (Other)
  Sender: FDA-Public Use
  Company Number: 2013010133

PATIENT
  Sex: Female

DRUGS (1)
  1. FELBAMATE [Suspect]
     Indication: CONVULSION
     Dosage: 1800 MG (600 MG, 3 IN 1 D), ORAL
     Route: 048

REACTIONS (1)
  - Drug withdrawal convulsions [None]
